FAERS Safety Report 21705828 (Version 1)
Quarter: 2022Q4

REPORT INFORMATION
  Report Type: Spontaneous
  Country: CA (occurrence: CA)
  Receive Date: 20221209
  Receipt Date: 20221209
  Transmission Date: 20230113
  Serious: Yes (Hospitalization, Other)
  Sender: FDA-Public Use
  Company Number: CA-009507513-2212CAN003548

PATIENT
  Sex: Female

DRUGS (5)
  1. KEYTRUDA [Suspect]
     Active Substance: PEMBROLIZUMAB
     Indication: Endometrial cancer
     Dosage: 200MG IV/ Q3 WEEKS
     Route: 042
     Dates: start: 20221027
  2. LENVATINIB MESYLATE [Suspect]
     Active Substance: LENVATINIB MESYLATE
     Indication: Endometrial cancer
     Dosage: UNK
     Route: 048
     Dates: start: 20221027, end: 20221027
  3. LENVATINIB MESYLATE [Suspect]
     Active Substance: LENVATINIB MESYLATE
     Dosage: UNK
     Route: 048
     Dates: start: 20221114, end: 20221201
  4. DIETARY SUPPLEMENT [Suspect]
     Active Substance: DIETARY SUPPLEMENT
  5. APIXABAN [Concomitant]
     Active Substance: APIXABAN
     Dosage: 5 MG TWICE A DAY

REACTIONS (7)
  - Malignant gastrointestinal obstruction [Unknown]
  - Ascites [Unknown]
  - Thrombocytopenia [Unknown]
  - Immune thrombocytopenia [Unknown]
  - Respiratory tract infection [Unknown]
  - Vaginal haemorrhage [Unknown]
  - Pleural effusion [Unknown]
